FAERS Safety Report 20085314 (Version 1)
Quarter: 2021Q4

REPORT INFORMATION
  Report Type: Report from Study
  Country: US (occurrence: US)
  Receive Date: 20211118
  Receipt Date: 20211118
  Transmission Date: 20220303
  Serious: No
  Sender: FDA-Public Use
  Company Number: US-SUNOVION-2021SUN004309

PATIENT
  Sex: Male

DRUGS (1)
  1. KYNMOBI [Suspect]
     Active Substance: APOMORPHINE HYDROCHLORIDE
     Dosage: 15 MG
     Route: 060
     Dates: start: 20211109

REACTIONS (3)
  - Freezing phenomenon [Unknown]
  - Feeling drunk [Not Recovered/Not Resolved]
  - Somnolence [Unknown]

NARRATIVE: CASE EVENT DATE: 20211109
